FAERS Safety Report 8067142-3 (Version None)
Quarter: 2012Q1

REPORT INFORMATION
  Report Type: 
  Country: None (occurrence: None)
  Receive Date: 20120124
  Receipt Date: 20120120
  Transmission Date: 20120608
  Serious: Yes (Hospitalization, Other)
  Sender: FDA-Public Use
  Company Number: CA-TEVA-317630USA

PATIENT
  Sex: Male

DRUGS (26)
  1. IRINOTECAN HCL [Suspect]
     Indication: GASTROINTESTINAL CANCER METASTATIC
     Route: 042
     Dates: start: 20110831
  2. IBUPROFEN [Concomitant]
     Dates: start: 20110601, end: 20111107
  3. LORAZEPAM [Concomitant]
     Dates: start: 20110701
  4. UBIDECARENONE [Concomitant]
     Dates: start: 20090801
  5. SELENIUM [Concomitant]
     Dates: start: 20090801
  6. ULTIMAG [Concomitant]
     Dates: start: 20111029
  7. ONDANSETRON [Concomitant]
     Dates: start: 20110831
  8. MULTI-VITAMIN [Concomitant]
     Dates: start: 20090801
  9. TOCOPHEROL CONCENTRATE CAP [Concomitant]
     Dates: start: 20090801
  10. VITIS VINIFERA EXTRACT [Concomitant]
     Dates: start: 20090801
  11. LACTULOSE [Concomitant]
     Dates: start: 20110903
  12. METOCLOPRAMIDE HCL [Concomitant]
     Dates: start: 20110831
  13. OXYCODONE HCL [Concomitant]
     Dates: start: 20110701
  14. ZOPICLONE [Concomitant]
     Dates: start: 20110701
  15. DOCUSATE SODIUM [Concomitant]
     Dates: start: 20110903, end: 20110927
  16. LEUCOVORIN CALCIUM [Suspect]
     Indication: GASTROINTESTINAL CANCER METASTATIC
     Route: 042
     Dates: start: 20110831
  17. RETINOL [Concomitant]
     Dates: start: 20090801
  18. DEXAMETHASONE [Concomitant]
     Dates: start: 20110831
  19. POLYETHYLENE GLYCOL [Concomitant]
     Dates: start: 20110905
  20. ACETAMINOPHEN [Concomitant]
     Dates: start: 20110601, end: 20110927
  21. OMEGA-3 FATTY ACIDS [Concomitant]
     Dates: start: 20090801
  22. ERGOCALCIFEROL [Concomitant]
     Dates: start: 20090801
  23. LIPLESS [Concomitant]
     Dates: start: 20111029
  24. ACETYLSALICYLIC ACID SRT [Concomitant]
     Dates: start: 20110831, end: 20111105
  25. FLUOROURACIL [Suspect]
     Indication: GASTROINTESTINAL CANCER METASTATIC
     Route: 042
     Dates: start: 20110831
  26. BRIVANIB ALANINATE [Suspect]
     Indication: GASTROINTESTINAL CANCER METASTATIC
     Dosage: 800 MILLIGRAM;
     Route: 048
     Dates: start: 20110831

REACTIONS (2)
  - HYPERBILIRUBINAEMIA [None]
  - FEBRILE NEUTROPENIA [None]
